FAERS Safety Report 21561297 (Version 3)
Quarter: 2022Q4

REPORT INFORMATION
  Report Type: Spontaneous
  Country: US (occurrence: US)
  Receive Date: 20221107
  Receipt Date: 20221209
  Transmission Date: 20230112
  Serious: No
  Sender: FDA-Public Use
  Company Number: US-PFIZER INC-202201248769

PATIENT
  Age: 12 Year
  Sex: Male
  Weight: 43.54 kg

DRUGS (1)
  1. GENOTROPIN [Suspect]
     Active Substance: SOMATROPIN
     Indication: Short stature
     Dosage: 1.6 MG, DAILY (NIGHTLY AT BEDTIME)
     Route: 058
     Dates: start: 202112

REACTIONS (2)
  - Device use issue [Unknown]
  - Device mechanical issue [Unknown]
